FAERS Safety Report 13773854 (Version 2)
Quarter: 2018Q3

REPORT INFORMATION
  Report Type: Spontaneous
  Country: US (occurrence: US)
  Receive Date: 20170720
  Receipt Date: 20180803
  Transmission Date: 20181010
  Serious: Yes (Hospitalization, Other)
  Sender: FDA-Public Use
  Company Number: US-BAYER-2017-137759

PATIENT
  Age: 34 Year
  Sex: Female
  Weight: 113.38 kg

DRUGS (1)
  1. MIRENA [Suspect]
     Active Substance: LEVONORGESTREL
     Indication: CONTRACEPTION
     Dosage: 20 MCG/24HR, CONT
     Route: 015
     Dates: start: 20170111, end: 20170303

REACTIONS (6)
  - Pain [Recovered/Resolved]
  - Device dislocation [Recovered/Resolved]
  - Post procedural haemorrhage [Recovered/Resolved]
  - Device issue [Recovered/Resolved]
  - Ovarian cyst [Recovered/Resolved]
  - Post procedural discomfort [Recovered/Resolved]

NARRATIVE: CASE EVENT DATE: 201701
